FAERS Safety Report 5462932-5 (Version None)
Quarter: 2007Q3

REPORT INFORMATION
  Report Type: 
  Country: None (occurrence: None)
  Receive Date: 20070920
  Receipt Date: 20070911
  Transmission Date: 20080115
  Serious: Yes (Death, Hospitalization)
  Sender: FDA-Public Use
  Company Number: US-AVENTIS-200718431GDDC

PATIENT
  Age: 68 Year
  Sex: Female
  Weight: 75 kg

DRUGS (19)
  1. TAXOTERE [Suspect]
     Route: 042
     Dates: start: 20070904, end: 20070904
  2. LONAFARNIB [Suspect]
     Dosage: DOSE: UNKNOWN DOSAGE ACTUALLY TAKEN; INSTRUCTED TO TAKE 150 MG TWICE A DAY
     Route: 048
     Dates: start: 20070905, end: 20070911
  3. URISED [Concomitant]
     Dosage: DOSE: UNK
  4. CIPROFLOXACIN [Concomitant]
     Dosage: DOSE: UNK
  5. FAMOTIDINE [Concomitant]
     Dosage: DOSE: UNK
  6. NITROFURANTOIN [Concomitant]
     Dosage: DOSE: UNK
  7. DETROL LA [Concomitant]
     Dosage: DOSE: UNK
  8. AVANDIA [Concomitant]
     Dosage: DOSE: UNK
  9. INSULIN [Concomitant]
     Dosage: DOSE: UNK
  10. GLUCOPHAGE [Concomitant]
     Dosage: DOSE: UNK
  11. DIOVAN [Concomitant]
     Dosage: DOSE: UNK
  12. OLYNASE [Concomitant]
     Dosage: DOSE: UNK
  13. CELEBREX [Concomitant]
     Dosage: DOSE: UNK
  14. LIPITOR [Concomitant]
     Dosage: DOSE: UNK
  15. CENTRUM SILVER                     /01292501/ [Concomitant]
     Dosage: DOSE: UNK
  16. ASPIRIN [Concomitant]
     Dosage: DOSE: UNK
  17. VIT D [Concomitant]
     Dosage: DOSE: UNK
  18. OXYCODONE HCL [Concomitant]
     Dosage: DOSE: UNK
  19. MORPHINE [Concomitant]
     Dosage: DOSE: UNK

REACTIONS (2)
  - DEATH [None]
  - DIABETIC KETOACIDOSIS [None]
